FAERS Safety Report 23566516 (Version 1)
Quarter: 2024Q1

REPORT INFORMATION
  Report Type: Spontaneous
  Country: US (occurrence: US)
  Receive Date: 20240226
  Receipt Date: 20240226
  Transmission Date: 20240410
  Serious: No
  Sender: FDA-Public Use
  Company Number: US-AMNEAL PHARMACEUTICALS-2023-AMRX-00439

PATIENT
  Sex: Female
  Weight: 39.456 kg

DRUGS (7)
  1. RYTARY [Suspect]
     Active Substance: CARBIDOPA\LEVODOPA
     Indication: Parkinson^s disease
     Dosage: 1 CAPSULES(48.75-195 MG), 3 /DAY
     Route: 048
  2. RYTARY [Suspect]
     Active Substance: CARBIDOPA\LEVODOPA
     Dosage: 23 CAPSULES(48.75/195MG), QID
     Route: 048
  3. RYTARY [Suspect]
     Active Substance: CARBIDOPA\LEVODOPA
     Dosage: 1 CAPSULES(195MG), 4 /DAY
     Route: 065
     Dates: start: 2020
  4. CLONAZEPAM [Concomitant]
     Active Substance: CLONAZEPAM
     Indication: Sleep disorder
     Dosage: 0.5MG, ONCE A SLEEP
     Route: 065
  5. SELEGILINE [Concomitant]
     Active Substance: SELEGILINE
     Indication: Sleep disorder
     Dosage: 0.5MG, 1 /DAY
     Route: 065
  6. CEFADROXIL [Concomitant]
     Active Substance: CEFADROXIL
     Indication: Antibiotic therapy
     Dosage: 500MG, 1 /DAY
     Route: 065
  7. FLUCONAZOLE [Concomitant]
     Active Substance: FLUCONAZOLE
     Indication: Infection
     Dosage: 200MG INJECTION
     Route: 065

REACTIONS (4)
  - On and off phenomenon [Unknown]
  - Freezing phenomenon [Unknown]
  - Dystonia [Unknown]
  - Drug effect less than expected [Unknown]
